FAERS Safety Report 24748514 (Version 2)
Quarter: 2024Q4

REPORT INFORMATION
  Report Type: Spontaneous
  Country: CN (occurrence: CN)
  Receive Date: 20241218
  Receipt Date: 20241220
  Transmission Date: 20250115
  Serious: Yes (Other)
  Sender: MERCK
  Company Number: CN-009507513-2412CHN005644

PATIENT
  Age: 65 Year
  Sex: Male
  Weight: 70 kg

DRUGS (1)
  1. KEYTRUDA [Suspect]
     Active Substance: PEMBROLIZUMAB
     Indication: Neoplasm
     Dosage: 200 MILLIGRAM, EVERY 4 WEEKS
     Route: 041
     Dates: start: 20241023, end: 20241023

REACTIONS (12)
  - Immune-mediated lung disease [Recovering/Resolving]
  - Pericardial effusion [Unknown]
  - Chest discomfort [Recovering/Resolving]
  - Pleural effusion [Unknown]
  - Pleural thickening [Unknown]
  - Soft tissue swelling [Unknown]
  - Lymphadenopathy [Unknown]
  - Lymphadenopathy mediastinal [Unknown]
  - Rib fracture [Unknown]
  - Hepatic lesion [Unknown]
  - Product use issue [Unknown]
  - Expired product administered [Unknown]

NARRATIVE: CASE EVENT DATE: 20241102
